FAERS Safety Report 7293961-7 (Version None)
Quarter: 2011Q1

REPORT INFORMATION
  Report Type: 
  Country: None (occurrence: None)
  Receive Date: 20110203
  Receipt Date: 20110201
  Transmission Date: 20110831
  Serious: Yes (Other)
  Sender: FDA-Public Use
  Company Number: A0892455A

PATIENT
  Age: 61 Year
  Sex: Female

DRUGS (1)
  1. ALGINIC ACID + ALUMINIUM HYDROXIDE + MAGNESIUM CARBONATE TAB (ALING.AC [Suspect]
     Indication: GASTROOESOPHAGEAL REFLUX DISEASE
     Dates: start: 20101111, end: 20101111

REACTIONS (2)
  - RECTAL HAEMORRHAGE [None]
  - BACK PAIN [None]
